FAERS Safety Report 7764662-3 (Version None)
Quarter: 2011Q3

REPORT INFORMATION
  Report Type: 
  Country: None (occurrence: None)
  Receive Date: 20110921
  Receipt Date: 20110915
  Transmission Date: 20111222
  Serious: Yes (Hospitalization, Other)
  Sender: FDA-Public Use
  Company Number: PHEH2011US04276

PATIENT
  Age: 43 Year
  Sex: Female

DRUGS (15)
  1. OXYBUTYNIN [Concomitant]
     Dosage: UNK UKN, UNK
  2. ACETAMINOPHEN AND HYDROCODONE BITARTRATE [Concomitant]
     Indication: PAIN
     Dosage: 5 MG, TO 500 MG
     Dates: start: 20010101
  3. STOOL SOFTENER [Concomitant]
     Dosage: UNK UKN, UNK
  4. INTERFERON BETA-1A [Concomitant]
     Indication: PROGRESSIVE MULTIPLE SCLEROSIS
     Dosage: UNK UKN, UNK
     Route: 058
  5. SUMATRIPTAN SUCCINATE [Concomitant]
     Dosage: UNK UKN, UNK
  6. GLATIRAMER ACETATE [Concomitant]
     Indication: PROGRESSIVE MULTIPLE SCLEROSIS
     Dosage: UNK UKN, UNK
  7. CYCLOBENZAPRINE [Concomitant]
     Dosage: 10 MG, PRN
     Dates: start: 20020110
  8. NABUMETONE [Concomitant]
     Indication: SENSATION OF HEAVINESS
     Dosage: 1500 MG, UNK
     Dates: start: 19991115, end: 20100512
  9. TYLENOL ARTHRITIS EXTENDED RELIEF [Concomitant]
     Indication: PAIN
     Dosage: UNK UKN, UNK
  10. NORVASC [Concomitant]
     Dosage: UNK UKN, UNK
  11. ROPINIROLE [Concomitant]
     Dosage: UNK UKN, UNK
  12. INTERFERON BETA-1A [Concomitant]
     Dosage: UNK UKN, UNK
     Route: 030
  13. INTERFERON BETA-1B [Suspect]
     Indication: PROGRESSIVE MULTIPLE SCLEROSIS
     Dosage: UNK UKN, UNK
  14. METOPROLOL TARTRATE [Concomitant]
     Indication: CARDIOVASCULAR EVENT PROPHYLAXIS
     Dosage: 100 MG, UNK
     Dates: start: 20020205
  15. ACCUPRIL [Concomitant]
     Dosage: 80 MG, QD
     Dates: start: 20010110, end: 20090429

REACTIONS (2)
  - RENAL FAILURE ACUTE [None]
  - CARDIAC FAILURE CONGESTIVE [None]
